FAERS Safety Report 15183348 (Version 1)
Quarter: 2018Q3

REPORT INFORMATION
  Report Type: Spontaneous
  Country: FR (occurrence: FR)
  Receive Date: 20180723
  Receipt Date: 20180723
  Transmission Date: 20181010
  Serious: Yes (Other)
  Sender: FDA-Public Use
  Company Number: FR-MYLANLABS-2018M1053464

PATIENT
  Age: 25 Year

DRUGS (1)
  1. BISOPROLOL [Suspect]
     Active Substance: BISOPROLOL
     Indication: TACHYCARDIA
     Dosage: UNK

REACTIONS (3)
  - Stress [Unknown]
  - Angina pectoris [Unknown]
  - Blood pressure decreased [Unknown]
